FAERS Safety Report 8061804-X (Version None)
Quarter: 2012Q1

REPORT INFORMATION
  Report Type: 
  Country: None (occurrence: None)
  Receive Date: 20120123
  Receipt Date: 20120116
  Transmission Date: 20120608
  Serious: Yes (Hospitalization)
  Sender: FDA-Public Use
  Company Number: US-AMGEN-USASP2012002914

PATIENT
  Age: 45 Year
  Sex: Female

DRUGS (2)
  1. ENBREL [Suspect]
     Indication: RHEUMATOID ARTHRITIS
     Dosage: 50 MG, QWK
     Dates: start: 19980101
  2. HUMIRA [Concomitant]
     Indication: RHEUMATOID ARTHRITIS

REACTIONS (5)
  - ARTHRALGIA [None]
  - FATIGUE [None]
  - RHEUMATOID ARTHRITIS [None]
  - JOINT STIFFNESS [None]
  - PAIN IN EXTREMITY [None]
